FAERS Safety Report 18984857 (Version 2)
Quarter: 2021Q1

REPORT INFORMATION
  Report Type: Spontaneous
  Country: US (occurrence: US)
  Receive Date: 20210309
  Receipt Date: 20210315
  Transmission Date: 20210420
  Serious: No
  Sender: FDA-Public Use
  Company Number: US-ASTRAZENECA-2021A102076

PATIENT
  Sex: Female
  Weight: 127 kg

DRUGS (4)
  1. LINIOPRIL [Concomitant]
     Indication: BLOOD PRESSURE MEASUREMENT
     Dosage: 10, DAILY
  2. METFORMIN [Concomitant]
     Active Substance: METFORMIN HYDROCHLORIDE
     Indication: DIABETES MELLITUS
  3. ONE?A?DAY NOS [Concomitant]
     Active Substance: MINERALS\VITAMINS
     Dosage: DAILY
  4. BYDUREON BCISE [Suspect]
     Active Substance: EXENATIDE
     Indication: BLOOD GLUCOSE ABNORMAL
     Route: 058
     Dates: start: 20210106

REACTIONS (8)
  - Injection site bruising [Unknown]
  - Injection site erythema [Unknown]
  - Device issue [Unknown]
  - Injection site mass [Unknown]
  - Injection site extravasation [Unknown]
  - Injection site irritation [Unknown]
  - Injection site pruritus [Unknown]
  - Injection site rash [Unknown]
